FAERS Safety Report 8208551 (Version 10)
Quarter: 2013Q3

REPORT INFORMATION
  Report Type: Report from Study
  Country: US (occurrence: US)
  Receive Date: 20111028
  Receipt Date: 20130819
  Transmission Date: 20140515
  Serious: Yes (Death, Other)
  Sender: FDA-Public Use
  Company Number: PHEH2011US07893

PATIENT
  Age: 62 Year
  Sex: Female
  Weight: 63.49 kg

DRUGS (8)
  1. GILENYA [Suspect]
     Indication: MULTIPLE SCLEROSIS
     Dosage: 0.5 MG, DAILY
     Route: 048
     Dates: start: 20110301
  2. FAMPRIDINE [Concomitant]
     Indication: MULTIPLE SCLEROSIS
     Dosage: 10 MG, BID
     Route: 048
     Dates: start: 2010
  3. DURAGESIC [Concomitant]
     Dosage: 7.5 MG, Q72H
     Route: 062
  4. VICODIN ES [Concomitant]
     Dosage: 7.5(HYDROCODONE BITARTARATE)+250(PARACETAMOL)
     Route: 048
  5. RESTORIL [Concomitant]
  6. NAMENDA [Concomitant]
  7. BACLOFEN [Concomitant]
  8. ELAVIL [Concomitant]

REACTIONS (5)
  - Multiple sclerosis [Fatal]
  - Myocardial infarction [Unknown]
  - Electrocardiogram abnormal [Unknown]
  - Sinus tachycardia [Unknown]
  - Left atrial dilatation [Unknown]
